FAERS Safety Report 5610933-6 (Version None)
Quarter: 2008Q1

REPORT INFORMATION
  Report Type: 
  Country: None (occurrence: None)
  Receive Date: 20080128
  Receipt Date: 20080121
  Transmission Date: 20080703
  Serious: Yes (Hospitalization, Other)
  Sender: FDA-Public Use
  Company Number: 2008-00172

PATIENT
  Age: 72 Year
  Sex: Male
  Weight: 85.9 kg

DRUGS (4)
  1. VELCADE [Suspect]
     Indication: MULTIPLE MYELOMA
     Dosage: 2.50 MG, INTRAVENOUS
     Route: 042
     Dates: start: 20071106, end: 20080103
  2. ALLOPURINOL [Concomitant]
  3. INSULIN (INSULIN) [Concomitant]
  4. HYZAAR [Concomitant]

REACTIONS (4)
  - CONVULSION [None]
  - FATIGUE [None]
  - HYPOTENSION [None]
  - UNRESPONSIVE TO STIMULI [None]
